FAERS Safety Report 9668039 (Version 2)
Quarter: 2013Q4

REPORT INFORMATION
  Report Type: Spontaneous
  Country: US (occurrence: None)
  Receive Date: 20131101
  Receipt Date: 20131112
  Transmission Date: 20140711
  Serious: Yes (Other)
  Sender: FDA-Public Use
  Company Number: 20130613

PATIENT
  Age: 2 Month
  Sex: Male

DRUGS (4)
  1. CHLOROTHIAZIDE SODIUM [Suspect]
     Indication: CARDIAC DISORDER
     Dosage: 10/MG/KG/DOSE 2X
  2. FUROSEMIDE [Suspect]
     Indication: CARDIAC DISORDER
  3. ENALAPRIL [Suspect]
     Indication: NEPHROTIC SYNDROME
     Route: 048
  4. ENALAPRIL [Suspect]
     Indication: NEPHROTIC SYNDROME
     Dosage: 2 ADDITIONAL DOSES

REACTIONS (6)
  - Renal failure acute [None]
  - Hypotension [None]
  - Oliguria [None]
  - Pulmonary hypertension [None]
  - Respiratory failure [None]
  - Drug interaction [None]
